FAERS Safety Report 6920737-X (Version None)
Quarter: 2010Q3

REPORT INFORMATION
  Report Type: 
  Country: None (occurrence: None)
  Receive Date: 20100804
  Receipt Date: 20100415
  Transmission Date: 20110219
  Serious: No
  Sender: FDA-Public Use
  Company Number: 2010-1279

PATIENT
  Age: 39 Year
  Sex: Female
  Weight: 63.5 kg

DRUGS (3)
  1. SOMATULINE DEPOT [Suspect]
     Indication: ACROMEGALY
     Dosage: 90MG EVERY 28 DAYS (90 MG, 1 IN 1 M), SUBCUTANEOUS
     Route: 058
     Dates: start: 20100414, end: 20100414
  2. SYNTHROID [Concomitant]
  3. MICRONOR [Concomitant]

REACTIONS (5)
  - ABDOMINAL DISCOMFORT [None]
  - DIARRHOEA [None]
  - INJECTION SITE DISCOMFORT [None]
  - NAUSEA [None]
  - URTICARIA [None]
